FAERS Safety Report 9825464 (Version 1)
Quarter: 2014Q1

REPORT INFORMATION
  Report Type: Spontaneous
  Country: US (occurrence: US)
  Receive Date: 20140117
  Receipt Date: 20140117
  Transmission Date: 20141002
  Serious: No
  Sender: FDA-Public Use
  Company Number: US-PFIZER INC-2014012991

PATIENT
  Age: 31 Year
  Sex: Male
  Weight: 56.69 kg

DRUGS (1)
  1. VIAGRA [Suspect]
     Indication: ERECTILE DYSFUNCTION
     Dosage: UNK, 3X/DAY
     Route: 048
     Dates: start: 201312

REACTIONS (2)
  - Inappropriate schedule of drug administration [Unknown]
  - Penile swelling [Not Recovered/Not Resolved]
